FAERS Safety Report 11470313 (Version 2)
Quarter: 2015Q3

REPORT INFORMATION
  Report Type: Spontaneous
  Country: US (occurrence: US)
  Receive Date: 20150903
  Receipt Date: 20150903
  Transmission Date: 20151125
  Serious: Yes (Other)
  Sender: FDA-Public Use
  Company Number: US-ELI_LILLY_AND_COMPANY-US201110001393

PATIENT
  Age: 24 Year
  Sex: Male
  Weight: 65.76 kg

DRUGS (1)
  1. CYMBALTA [Suspect]
     Active Substance: DULOXETINE HYDROCHLORIDE
     Indication: ANXIETY
     Dosage: 30MG QD
     Route: 048
     Dates: start: 20110929, end: 20110930

REACTIONS (5)
  - Hypoaesthesia [Recovered/Resolved]
  - Serotonin syndrome [Recovered/Resolved]
  - Paraesthesia [Recovered/Resolved]
  - Hyperreflexia [Recovered/Resolved]
  - Tachypnoea [Recovered/Resolved]

NARRATIVE: CASE EVENT DATE: 20110929
